FAERS Safety Report 9694614 (Version 2)
Quarter: 2013Q4

REPORT INFORMATION
  Report Type: Spontaneous
  Country: RO (occurrence: RO)
  Receive Date: 20131119
  Receipt Date: 20131204
  Transmission Date: 20140711
  Serious: Yes (Other)
  Sender: FDA-Public Use
  Company Number: RO-ROCHE-1303753

PATIENT
  Sex: Male

DRUGS (1)
  1. PEGASYS [Suspect]
     Indication: HEPATITIS C
     Route: 065
     Dates: start: 201307, end: 201311

REACTIONS (5)
  - Administration site reaction [Recovered/Resolved]
  - Tremor [Recovered/Resolved]
  - Weight decreased [Recovering/Resolving]
  - Suspected counterfeit product [Unknown]
  - Rash [Recovered/Resolved]
